FAERS Safety Report 6249718-9 (Version None)
Quarter: 2009Q2

REPORT INFORMATION
  Report Type: 
  Country: None (occurrence: None)
  Receive Date: 20090625
  Receipt Date: 20090625
  Transmission Date: 20091009
  Serious: Yes (Hospitalization)
  Sender: FDA-Public Use
  Company Number: None

PATIENT
  Age: 51 Year
  Sex: Female
  Weight: 59.47 kg

DRUGS (1)
  1. ASPIRIN [Suspect]
     Dosage: 325 MG ONCE A DAY PO, CHRONIC USE
     Route: 048

REACTIONS (1)
  - GASTRIC ULCER PERFORATION [None]
